FAERS Safety Report 10994854 (Version 1)
Quarter: 2015Q2

REPORT INFORMATION
  Report Type: Report from Study
  Country: PH (occurrence: PH)
  Receive Date: 20150407
  Receipt Date: 20150407
  Transmission Date: 20150821
  Serious: Yes (Hospitalization)
  Sender: FDA-Public Use
  Company Number: PHHY2015PH035289

PATIENT
  Age: 49 Year
  Sex: Female

DRUGS (2)
  1. GLIVEC [Suspect]
     Active Substance: IMATINIB MESYLATE
     Indication: PRODUCT USED FOR UNKNOWN INDICATION
     Dosage: 400 MG, QD
     Route: 048
     Dates: start: 20150317, end: 20150324
  2. CO-AMOXICLAV [Concomitant]
     Active Substance: AMOXICILLIN\CLAVULANIC ACID
     Indication: PRODUCT USED FOR UNKNOWN INDICATION
     Dosage: UNK UNK, TID
     Route: 065
     Dates: start: 20150320

REACTIONS (7)
  - Arthralgia [Unknown]
  - Odynophagia [Unknown]
  - Local swelling [Unknown]
  - Skin swelling [Unknown]
  - Swelling face [Unknown]
  - Tongue discolouration [Unknown]
  - Swollen tongue [Unknown]

NARRATIVE: CASE EVENT DATE: 20150324
